FAERS Safety Report 9579901 (Version 1)
Quarter: 2013Q3

REPORT INFORMATION
  Report Type: Spontaneous
  Country: US (occurrence: None)
  Receive Date: 20130916
  Receipt Date: 20130916
  Transmission Date: 20140515
  Serious: Yes (Other)
  Sender: FDA-Public Use
  Company Number: JPI-P-026395

PATIENT
  Age: 50 Year
  Sex: Female
  Weight: 72.58 kg

DRUGS (2)
  1. XYREM (500 MILLIGRAM/MILLILITERS, SOLUTION) (SODIUM OXYBATE) [Suspect]
     Indication: CATAPLEXY
     Dosage: 12 GM (6 GM, 2 IN 1 D), ORAL
     Route: 048
     Dates: start: 20060817
  2. METHYLPHENIDATE [Concomitant]

REACTIONS (5)
  - Concussion [None]
  - Head injury [None]
  - Fall [None]
  - Hallucination [None]
  - Weight increased [None]
